FAERS Safety Report 9537624 (Version 1)
Quarter: 2013Q3

REPORT INFORMATION
  Report Type: Spontaneous
  Country: US (occurrence: US)
  Receive Date: 20130919
  Receipt Date: 20130919
  Transmission Date: 20140515
  Serious: No
  Sender: FDA-Public Use
  Company Number: US-B.I. PHARMACEUTICALS,INC./RIDGEFIELD-2013-BI-28633BP

PATIENT
  Age: 71 Year
  Sex: Female
  Weight: 68 kg

DRUGS (4)
  1. PRADAXA [Suspect]
     Indication: ATRIAL FIBRILLATION
     Dosage: 300 MG
     Route: 048
     Dates: start: 2011
  2. LISINOPRIL [Concomitant]
     Indication: HYPERTENSION
     Dosage: 10 MG
     Route: 048
  3. LEVOTHYROXINE [Concomitant]
     Indication: HYPOTHYROIDISM
     Dosage: 100 MG
     Route: 048
  4. SOTALOL [Concomitant]
     Indication: ATRIAL FIBRILLATION
     Dosage: 160 MG
     Route: 048

REACTIONS (4)
  - Abdominal pain [Recovered/Resolved]
  - Oesophageal pain [Recovered/Resolved]
  - Abnormal loss of weight [Recovered/Resolved]
  - Chills [Recovered/Resolved]
